FAERS Safety Report 6384825-1 (Version None)
Quarter: 2009Q4

REPORT INFORMATION
  Report Type: 
  Country: None (occurrence: None)
  Receive Date: 20091002
  Receipt Date: 20090917
  Transmission Date: 20100525
  Serious: Yes (Death)
  Sender: FDA-Public Use
  Company Number: US-ELI_LILLY_AND_COMPANY-US200909007100

PATIENT

DRUGS (2)
  1. GEMCITABINE HCL [Suspect]
     Indication: PANCREATIC CARCINOMA
     Dosage: 1000 MG/M2, WEEKLY (1/W)
  2. BEVACIZUMAB [Concomitant]
     Indication: PANCREATIC CARCINOMA
     Dosage: 5 MG/KG, EVERY 2 WEEKS IN 4 WEEK CYCLES

REACTIONS (1)
  - SUDDEN DEATH [None]
